FAERS Safety Report 7329992-8 (Version None)
Quarter: 2011Q1

REPORT INFORMATION
  Report Type: 
  Country: None (occurrence: None)
  Receive Date: 20110303
  Receipt Date: 20110225
  Transmission Date: 20110831
  Serious: Yes (Other)
  Sender: FDA-Public Use
  Company Number: GB-AMGEN-KDL425249

PATIENT
  Age: 47 Year
  Sex: Female

DRUGS (8)
  1. PEGINTERFERON ALFA-2A [Suspect]
     Indication: HEPATITIS C
     Dosage: 180 A?G, QWK
     Route: 058
     Dates: start: 20091106, end: 20110114
  2. PEGINTERFERON ALFA-2A [Suspect]
     Dosage: 135 A?G, UNK
  3. RIBASPHERE [Suspect]
     Indication: HEPATITIS C
     Dosage: 1200 MG, BID
     Route: 048
     Dates: start: 20091106
  4. ARANESP [Suspect]
     Indication: PRODUCT USED FOR UNKNOWN INDICATION
  5. RIBASPHERE [Suspect]
     Dosage: 800 MG, QD
     Dates: end: 20110114
  6. NEUPOGEN [Suspect]
     Indication: ANAEMIA
     Dosage: UNK UNK, UNK
     Route: 058
     Dates: start: 20091123
  7. PROCRIT [Suspect]
     Indication: ANAEMIA
     Dosage: UNK UNK, QWK
     Route: 058
     Dates: start: 20100418
  8. RIBASPHERE [Suspect]
     Dosage: 1000 MG, UNK

REACTIONS (16)
  - DIZZINESS [None]
  - TRANSFUSION REACTION [None]
  - WEIGHT DECREASED [None]
  - NAUSEA [None]
  - ALOPECIA [None]
  - PAIN [None]
  - WHITE BLOOD CELL COUNT DECREASED [None]
  - ANAEMIA [None]
  - HAEMOGLOBIN ABNORMAL [None]
  - PLATELET COUNT DECREASED [None]
  - BACK PAIN [None]
  - COUGH [None]
  - PANCYTOPENIA [None]
  - HAEMOGLOBIN DECREASED [None]
  - FATIGUE [None]
  - RASH [None]
